FAERS Safety Report 5185707-3 (Version None)
Quarter: 2006Q4

REPORT INFORMATION
  Report Type: 
  Country: None (occurrence: None)
  Receive Date: 20061220
  Receipt Date: 20060829
  Transmission Date: 20070319
  Serious: No
  Sender: FDA-Public Use
  Company Number: US-GLAXOSMITHKLINE-A0618438A

PATIENT
  Age: 46 Year

DRUGS (1)
  1. EQUATE NTS 14MG [Suspect]

REACTIONS (1)
  - NICOTINE DEPENDENCE [None]
